FAERS Safety Report 12692530 (Version 1)
Quarter: 2016Q3

REPORT INFORMATION
  Report Type: Spontaneous
  Country: US (occurrence: US)
  Receive Date: 20160829
  Receipt Date: 20160829
  Transmission Date: 20161109
  Serious: No
  Sender: FDA-Public Use
  Company Number: US-ASTRAZENECA-2007BM17777

PATIENT
  Age: 58 Year
  Sex: Female
  Weight: 99.8 kg

DRUGS (7)
  1. EXENATIDE [Concomitant]
     Active Substance: EXENATIDE
  2. INSULIN [Concomitant]
     Active Substance: INSULIN NOS
     Dates: start: 201605
  3. BYETTA [Suspect]
     Active Substance: EXENATIDE
     Indication: TYPE 2 DIABETES MELLITUS
     Route: 058
     Dates: start: 200705, end: 200706
  4. BYETTA [Suspect]
     Active Substance: EXENATIDE
     Indication: TYPE 2 DIABETES MELLITUS
     Route: 058
     Dates: start: 200706
  5. BYDUREON [Suspect]
     Active Substance: EXENATIDE
     Indication: TYPE 2 DIABETES MELLITUS
     Route: 058
     Dates: start: 201605
  6. METFORMIN [Concomitant]
     Active Substance: METFORMIN HYDROCHLORIDE
     Indication: TYPE 2 DIABETES MELLITUS
     Dosage: 1000 MG, QD
     Route: 048
     Dates: start: 2000
  7. ACTOS [Concomitant]
     Active Substance: PIOGLITAZONE HYDROCHLORIDE
     Indication: TYPE 2 DIABETES MELLITUS
     Dosage: UNK UNK, QD
     Route: 048
     Dates: end: 200705

REACTIONS (8)
  - Blood glucose decreased [Not Recovered/Not Resolved]
  - Product quality issue [Unknown]
  - Diarrhoea [Recovering/Resolving]
  - Off label use [Unknown]
  - Confusional state [Not Recovered/Not Resolved]
  - Underdose [Unknown]
  - Blood glucose increased [Recovering/Resolving]
  - Intentional device misuse [Unknown]

NARRATIVE: CASE EVENT DATE: 200706
